FAERS Safety Report 4535120-4 (Version None)
Quarter: 2004Q4

REPORT INFORMATION
  Report Type: 
  Country: None (occurrence: None)
  Receive Date: 20041222
  Receipt Date: 20040617
  Transmission Date: 20050328
  Serious: Yes (Hospitalization, Disabling)
  Sender: FDA-Public Use
  Company Number: US-MERCK-0406USA01732

PATIENT
  Age: 42 Year
  Sex: Male
  Weight: 107 kg

DRUGS (6)
  1. VIOXX [Suspect]
     Indication: ROTATOR CUFF SYNDROME
     Route: 048
     Dates: start: 20020522, end: 20020601
  2. VIOXX [Suspect]
     Route: 048
     Dates: start: 20020520, end: 20020521
  3. TYLENOL W/ CODEINE NO. 3 [Concomitant]
     Indication: ROTATOR CUFF SYNDROME
     Route: 048
  4. VICODIN [Concomitant]
     Route: 065
     Dates: start: 20010601, end: 20040101
  5. TYLENOL (CAPLET) [Concomitant]
     Route: 065
     Dates: start: 20010601, end: 20040101
  6. ECOTRIN [Concomitant]
     Route: 065
     Dates: start: 20010601, end: 20040101

REACTIONS (12)
  - ALANINE AMINOTRANSFERASE INCREASED [None]
  - ATHEROSCLEROSIS [None]
  - BLOOD CHOLESTEROL INCREASED [None]
  - BLOOD GLUCOSE INCREASED [None]
  - BLOOD PRESSURE DECREASED [None]
  - BLOOD TRIGLYCERIDES INCREASED [None]
  - HYPERTENSION [None]
  - JOINT SWELLING [None]
  - MYOCARDIAL INFARCTION [None]
  - OXYGEN SATURATION DECREASED [None]
  - PCO2 DECREASED [None]
  - WEIGHT INCREASED [None]
